FAERS Safety Report 17276817 (Version 3)
Quarter: 2020Q1

REPORT INFORMATION
  Report Type: Spontaneous
  Country: US (occurrence: US)
  Receive Date: 20200116
  Receipt Date: 20200224
  Transmission Date: 20200409
  Serious: Yes (Other)
  Sender: FDA-Public Use
  Company Number: US-PFIZER INC-2020019089

PATIENT
  Age: 69 Year
  Sex: Female
  Weight: 78.5 kg

DRUGS (1)
  1. MORPHINE SULFATE. [Suspect]
     Active Substance: MORPHINE SULFATE
     Indication: SURGERY
     Dosage: UNK
     Dates: start: 2005

REACTIONS (3)
  - Drug hypersensitivity [Recovered/Resolved]
  - Hallucination [Unknown]
  - Agitation [Unknown]
